FAERS Safety Report 23408526 (Version 1)
Quarter: 2024Q1

REPORT INFORMATION
  Report Type: Other
  Country: PL (occurrence: PL)
  Receive Date: 20240117
  Receipt Date: 20240117
  Transmission Date: 20240409
  Serious: Yes (Other)
  Sender: FDA-Public Use
  Company Number: PL-Bion-012515

PATIENT
  Age: 10 Year
  Sex: Male

DRUGS (2)
  1. IBUPROFEN [Suspect]
     Active Substance: IBUPROFEN
     Indication: Eosinophilic cystitis
  2. DROTAVERINE [Concomitant]
     Active Substance: DROTAVERINE
     Indication: Eosinophilic cystitis

REACTIONS (2)
  - Acute kidney injury [Unknown]
  - Drug ineffective for unapproved indication [Not Recovered/Not Resolved]
